FAERS Safety Report 6888852-7 (Version None)
Quarter: 2010Q3

REPORT INFORMATION
  Report Type: 
  Country: None (occurrence: None)
  Receive Date: 20100730
  Receipt Date: 20071108
  Transmission Date: 20110219
  Serious: No
  Sender: FDA-Public Use
  Company Number: US-PFIZER INC-2007094371

PATIENT
  Sex: Female

DRUGS (2)
  1. LIPITOR [Suspect]
  2. GRAPEFRUIT JUICE [Suspect]

REACTIONS (2)
  - LABELLED DRUG-FOOD INTERACTION MEDICATION ERROR [None]
  - MUSCLE DISORDER [None]
